FAERS Safety Report 5089663-8 (Version None)
Quarter: 2006Q3

REPORT INFORMATION
  Report Type: 
  Country: None (occurrence: None)
  Receive Date: 20060731
  Receipt Date: 20051103
  Transmission Date: 20061208
  Serious: Yes (Other)
  Sender: FDA-Public Use
  Company Number: USA0511112849

PATIENT
  Age: 63 Year
  Sex: Female

DRUGS (3)
  1. FORTEO [Suspect]
  2. TEGRETOL [Concomitant]
  3. FORTEO [Concomitant]

REACTIONS (6)
  - ASTHENIA [None]
  - DIZZINESS [None]
  - FATIGUE [None]
  - HYPOTENSION [None]
  - LETHARGY [None]
  - NAUSEA [None]
